FAERS Safety Report 9745248 (Version 1)
Quarter: 2013Q4

REPORT INFORMATION
  Report Type: Spontaneous
  Country: US (occurrence: US)
  Receive Date: 20131211
  Receipt Date: 20131211
  Transmission Date: 20140711
  Serious: No
  Sender: FDA-Public Use
  Company Number: US-PFIZER INC-2013349705

PATIENT
  Age: 89 Year
  Sex: Female
  Weight: 53.52 kg

DRUGS (1)
  1. CLINDAMYCIN PHOSPHATE [Suspect]
     Indication: HYPERTRICHOSIS
     Dosage: UNK, 2X/DAY
     Route: 061
     Dates: start: 20131204

REACTIONS (2)
  - Dry skin [Unknown]
  - Pruritus [Unknown]
